FAERS Safety Report 5767340-5 (Version None)
Quarter: 2008Q2

REPORT INFORMATION
  Report Type: 
  Country: None (occurrence: None)
  Receive Date: 20080612
  Receipt Date: 20080606
  Transmission Date: 20081010
  Serious: Yes (Other)
  Sender: FDA-Public Use
  Company Number: A0714616A

PATIENT
  Age: 77 Year
  Sex: Male

DRUGS (3)
  1. AVODART [Suspect]
     Indication: BENIGN PROSTATIC HYPERPLASIA
     Dosage: .5MG PER DAY
     Route: 048
     Dates: start: 20060301, end: 20080310
  2. LEVOTHYROXINE SODIUM [Concomitant]
  3. LIPITOR [Concomitant]

REACTIONS (8)
  - BENIGN BREAST NEOPLASM [None]
  - BREAST ENLARGEMENT [None]
  - BREAST MASS [None]
  - BREAST PAIN [None]
  - FEELING ABNORMAL [None]
  - GYNAECOMASTIA [None]
  - PARAESTHESIA [None]
  - TENDERNESS [None]
